FAERS Safety Report 15436626 (Version 1)
Quarter: 2018Q3

REPORT INFORMATION
  Report Type: Spontaneous
  Country: US (occurrence: US)
  Receive Date: 20180927
  Receipt Date: 20180927
  Transmission Date: 20181010
  Serious: No
  Sender: FDA-Public Use
  Company Number: US-PFIZER INC-2018389010

PATIENT
  Age: 88 Year
  Sex: Female
  Weight: 66.67 kg

DRUGS (1)
  1. IBRANCE [Suspect]
     Active Substance: PALBOCICLIB
     Indication: BREAST CANCER METASTATIC
     Dosage: 75 MG, CYCLIC (DAY 1?21 EVERY 28 DAYS)
     Route: 048
     Dates: start: 20180830

REACTIONS (2)
  - Cough [Unknown]
  - Aphonia [Unknown]
